FAERS Safety Report 7286249-1 (Version None)
Quarter: 2011Q1

REPORT INFORMATION
  Report Type: 
  Country: None (occurrence: None)
  Receive Date: 20110210
  Receipt Date: 20110202
  Transmission Date: 20110831
  Serious: Yes (Other)
  Sender: FDA-Public Use
  Company Number: PHHY2009JP23558

PATIENT
  Age: 8 Year
  Sex: Male

DRUGS (4)
  1. TETRAMYCIN [Concomitant]
     Dosage: UNK
     Dates: start: 20070313
  2. PREDNISOLONE [Concomitant]
     Dosage: 50 MG, UNK
  3. ERYTHROMYCIN [Interacting]
     Indication: PARAPSORIASIS
     Dosage: 810 MG, UNK
     Dates: start: 20070216, end: 20070313
  4. NEORAL [Suspect]
     Indication: NEPHROTIC SYNDROME
     Dosage: 125 MG DAILY
     Route: 048

REACTIONS (5)
  - BLOOD UREA INCREASED [None]
  - DRUG LEVEL INCREASED [None]
  - BLOOD CREATININE INCREASED [None]
  - PITYRIASIS LICHENOIDES ET VARIOLIFORMIS ACUTA [None]
  - DRUG INTERACTION [None]
